FAERS Safety Report 24210572 (Version 1)
Quarter: 2024Q3

REPORT INFORMATION
  Report Type: Report from Study
  Country: US (occurrence: US)
  Receive Date: 20240814
  Receipt Date: 20240814
  Transmission Date: 20241016
  Serious: Yes (Death, Other)
  Sender: TAKEDA
  Company Number: US-TAKEDA-2022TUS015301

PATIENT
  Age: 69 Year
  Sex: Male

DRUGS (4)
  1. BRIGATINIB [Suspect]
     Active Substance: BRIGATINIB
     Indication: Bronchial carcinoma
     Dosage: 90 MILLIGRAM, QD
     Route: 065
     Dates: start: 20220305
  2. BRIGATINIB [Suspect]
     Active Substance: BRIGATINIB
     Dosage: 180 MILLIGRAM, QD
     Route: 048
     Dates: start: 20220323
  3. ATORVASTATIN [Concomitant]
     Active Substance: ATORVASTATIN
     Indication: Blood cholesterol
     Dosage: 40 MILLIGRAM
     Route: 065
  4. LISINOPRIL AND HYDROCHLOROTHIAZIDE [Concomitant]
     Active Substance: HYDROCHLOROTHIAZIDE\LISINOPRIL
     Indication: Blood pressure measurement
     Dosage: UNK
     Route: 065

REACTIONS (6)
  - Death [Fatal]
  - Sensation of foreign body [Recovered/Resolved]
  - Chest pain [Unknown]
  - Product dose omission issue [Not Recovered/Not Resolved]
  - Cough [Recovered/Resolved]
  - Dyspnoea [Recovered/Resolved]

NARRATIVE: CASE EVENT DATE: 20220306
